FAERS Safety Report 21509643 (Version 2)
Quarter: 2022Q4

REPORT INFORMATION
  Report Type: Report from Study
  Country: JP (occurrence: JP)
  Receive Date: 20221026
  Receipt Date: 20221125
  Transmission Date: 20230113
  Serious: Yes (Death, Other)
  Sender: FDA-Public Use
  Company Number: JP-MSD-M2022-44660

PATIENT
  Age: 40 Year
  Sex: Female
  Weight: 40 kg

DRUGS (3)
  1. PEMBROLIZUMAB [Suspect]
     Active Substance: PEMBROLIZUMAB
     Indication: Renal cell carcinoma stage IV
     Dosage: 200 MILLIGRAM, Q3W
     Route: 041
     Dates: start: 20210930, end: 20210930
  2. PEMBROLIZUMAB [Suspect]
     Active Substance: PEMBROLIZUMAB
     Dosage: 400 MILLIGRAM, UNK
     Route: 041
     Dates: start: 20211021, end: 20211021
  3. AXITINIB [Suspect]
     Active Substance: AXITINIB
     Indication: Renal cell carcinoma stage IV
     Dosage: 10 MILLIGRAM, QD
     Route: 048
     Dates: start: 20210930, end: 20211201

REACTIONS (1)
  - Death [Fatal]

NARRATIVE: CASE EVENT DATE: 20220701
